FAERS Safety Report 4334869-6 (Version None)
Quarter: 2004Q2

REPORT INFORMATION
  Report Type: 
  Country: None (occurrence: None)
  Receive Date: 20040408
  Receipt Date: 20040213
  Transmission Date: 20050107
  Serious: Yes (Hospitalization)
  Sender: FDA-Public Use
  Company Number: 200410640JP

PATIENT
  Age: 67 Year
  Sex: Female
  Weight: 57 kg

DRUGS (7)
  1. KETEK [Suspect]
     Indication: UPPER RESPIRATORY TRACT INFLAMMATION
     Route: 048
     Dates: start: 20040202, end: 20040205
  2. PRAVASTATIN SODIUM [Concomitant]
     Indication: HYPERLIPIDAEMIA
     Route: 048
  3. LANDEL [Concomitant]
     Indication: HYPERTENSION
     Route: 048
  4. PL GRAN. [Concomitant]
     Indication: NASOPHARYNGITIS
     Route: 048
     Dates: start: 20040202, end: 20040205
  5. TROXSIN [Concomitant]
     Indication: GASTRITIS
     Route: 048
     Dates: start: 20040202, end: 20040205
  6. FLOMOX [Concomitant]
     Indication: NASOPHARYNGITIS
     Route: 048
     Dates: start: 20040121, end: 20040130
  7. BENZA ACE [Concomitant]
     Indication: NASOPHARYNGITIS
     Route: 048
     Dates: start: 20040201

REACTIONS (10)
  - ALANINE AMINOTRANSFERASE INCREASED [None]
  - ANOREXIA [None]
  - ASPARTATE AMINOTRANSFERASE INCREASED [None]
  - ASTHENIA [None]
  - BLOOD ALKALINE PHOSPHATASE INCREASED [None]
  - BLOOD LACTATE DEHYDROGENASE INCREASED [None]
  - DEHYDRATION [None]
  - FEELING ABNORMAL [None]
  - GAMMA-GLUTAMYLTRANSFERASE INCREASED [None]
  - PLATELET COUNT DECREASED [None]
